FAERS Safety Report 17651820 (Version 1)
Quarter: 2020Q2

REPORT INFORMATION
  Report Type: Spontaneous
  Country: MX (occurrence: MX)
  Receive Date: 20200409
  Receipt Date: 20200409
  Transmission Date: 20200713
  Serious: Yes (Hospitalization)
  Sender: FDA-Public Use
  Company Number: MX-FRESENIUS KABI-FK202003580

PATIENT
  Age: 17 Year
  Sex: Male

DRUGS (4)
  1. ACYCLOVIR SODIUM (MANUFACTURER UNKNOWN) [Suspect]
     Active Substance: ACYCLOVIR SODIUM
     Indication: VARICELLA
     Dosage: UNKNOWN
     Route: 065
  2. ACYCLOVIR SODIUM (MANUFACTURER UNKNOWN) [Suspect]
     Active Substance: ACYCLOVIR SODIUM
     Indication: ENCEPHALITIS VIRAL
  3. PHENYTOIN. [Suspect]
     Active Substance: PHENYTOIN
     Indication: VARICELLA
     Dosage: UNKNOWN
     Route: 065
  4. PHENYTOIN. [Suspect]
     Active Substance: PHENYTOIN
     Indication: ENCEPHALITIS VIRAL

REACTIONS (3)
  - Haemophagocytic lymphohistiocytosis [Unknown]
  - Drug reaction with eosinophilia and systemic symptoms [Unknown]
  - Hepatic failure [Recovered/Resolved]
